FAERS Safety Report 9272836 (Version 1)
Quarter: 2013Q2

REPORT INFORMATION
  Report Type: Spontaneous
  Country: US (occurrence: US)
  Receive Date: 20130506
  Receipt Date: 20130506
  Transmission Date: 20140414
  Serious: No
  Sender: FDA-Public Use
  Company Number: US-ASTRAZENECA-2012SE50734

PATIENT
  Age: 54 Year
  Sex: Male

DRUGS (1)
  1. PRILOSEC OTC [Suspect]
     Route: 048

REACTIONS (5)
  - Eating disorder [Unknown]
  - Gastric disorder [Unknown]
  - Hyperchlorhydria [Unknown]
  - Vomiting [Unknown]
  - Dyspepsia [Unknown]
